FAERS Safety Report 4502334-9 (Version None)
Quarter: 2004Q4

REPORT INFORMATION
  Report Type: 
  Country: None (occurrence: None)
  Receive Date: 20041110
  Receipt Date: 20041105
  Transmission Date: 20050328
  Serious: Yes (Death, Hospitalization)
  Sender: FDA-Public Use
  Company Number: 200412986GDS

PATIENT
  Age: 87 Year
  Sex: Male

DRUGS (8)
  1. ASPIRIN [Suspect]
     Indication: MYOCARDIAL ISCHAEMIA
     Dosage: 100 MG, TOTAL DAILY, ORAL
     Route: 048
     Dates: end: 20040929
  2. CLOPIDOGREL BISULFATE [Suspect]
     Indication: CORONARY ANGIOPLASTY
     Dosage: 75 MG, TOTAL DAILY, ORAL
     Route: 048
     Dates: start: 20040923, end: 20040929
  3. CLOPIDOGREL BISULFATE [Suspect]
     Indication: DOUBLE VESSEL BYPASS GRAFT
     Dosage: 75 MG, TOTAL DAILY, ORAL
     Route: 048
     Dates: start: 20040923, end: 20040929
  4. HEPARIN [Suspect]
     Indication: INFARCTION
     Dosage: INTRAVENOUS
     Route: 042
     Dates: start: 20040929
  5. TIROFIBAN [Suspect]
     Indication: INFARCTION
     Dosage: INTRAVENOUS
     Route: 042
     Dates: start: 20040929
  6. ATENOLOL [Concomitant]
  7. LISINOPRIL [Concomitant]
  8. SIMVASTATIN [Concomitant]

REACTIONS (9)
  - ACUTE MYOCARDIAL INFARCTION [None]
  - CATHETER SITE HAEMATOMA [None]
  - CORONARY ANGIOPLASTY [None]
  - CORONARY ARTERY STENOSIS [None]
  - DRUG INTERACTION [None]
  - ELECTROMECHANICAL DISSOCIATION [None]
  - HAEMATEMESIS [None]
  - HYPOVOLAEMIC SHOCK [None]
  - THROMBOSIS [None]
